FAERS Safety Report 19447803 (Version 1)
Quarter: 2021Q2

REPORT INFORMATION
  Report Type: Other
  Country: US (occurrence: US)
  Receive Date: 20210622
  Receipt Date: 20210622
  Transmission Date: 20210717
  Serious: Yes (Hospitalization, Other)
  Sender: FDA-Public Use
  Company Number: US-VGYAAN PHARMACEUTICALS LLC-2112977

PATIENT
  Sex: Female

DRUGS (1)
  1. NADOLOL. [Suspect]
     Active Substance: NADOLOL
     Indication: FOETAL EXPOSURE DURING PREGNANCY
     Route: 064

REACTIONS (7)
  - Premature baby [Unknown]
  - Bradycardia neonatal [Unknown]
  - Hypoglycaemia neonatal [Recovered/Resolved]
  - Small for dates baby [Unknown]
  - Foetal exposure during pregnancy [Unknown]
  - Agitation neonatal [Unknown]
  - Neonatal hypoxia [Unknown]
